FAERS Safety Report 9168625 (Version 1)
Quarter: 2013Q1

REPORT INFORMATION
  Report Type: Spontaneous
  Country: GB (occurrence: None)
  Receive Date: 20130305
  Receipt Date: 20130305
  Transmission Date: 20140127
  Serious: Yes (Other)
  Sender: FDA-Public Use
  Company Number: 2013-00633

PATIENT
  Age: 40 Year
  Sex: Male
  Weight: 79 kg

DRUGS (2)
  1. SERTRALINE HYDROCHLORIDE [Suspect]
     Indication: DEPRESSION
     Route: 048
     Dates: start: 20121116, end: 20121222
  2. ZOPICLONE [Concomitant]

REACTIONS (8)
  - Insomnia [None]
  - Bruxism [None]
  - Tremor [None]
  - Anxiety [None]
  - Pain in extremity [None]
  - Restless legs syndrome [None]
  - Heart rate increased [None]
  - Yawning [None]
